FAERS Safety Report 10400280 (Version 1)
Quarter: 2014Q3

REPORT INFORMATION
  Report Type: Spontaneous
  Country: NL (occurrence: NL)
  Receive Date: 20140821
  Receipt Date: 20140821
  Transmission Date: 20150326
  Serious: Yes (Hospitalization, Other)
  Sender: FDA-Public Use
  Company Number: NL-PFIZER INC-2014232197

PATIENT
  Age: 72 Year
  Sex: Female
  Weight: 87 kg

DRUGS (10)
  1. ATORVASTATIN [Concomitant]
     Active Substance: ATORVASTATIN
     Dosage: 10 MG, 1X/DAY
  2. CALCIUM CARBONATE/COLECALCIFEROL [Concomitant]
     Dosage: 1 DF, 1X/DAY
  3. INSULIN ASPART/PROTAMINE [Concomitant]
     Dosage: 1 DF, 2X/DAY
  4. ACETYLSALICYLIC ACID [Concomitant]
     Active Substance: ASPIRIN
     Dosage: 80 MG, 1X/DAY
  5. AMLODIPINE [Concomitant]
     Active Substance: AMLODIPINE BESYLATE
     Dosage: 5 MG, 1X/DAY
  6. OMEPRAZOL [Concomitant]
     Active Substance: OMEPRAZOLE
     Dosage: 1 DF, 1X/DAY
     Dates: start: 20140605
  7. METOPROLOL [Concomitant]
     Active Substance: METOPROLOL
     Dosage: 100 MG, 1X/DAY
  8. IRBESARTAN HYDROCHLOROTHIAZIDE [Concomitant]
     Active Substance: HYDROCHLOROTHIAZIDE\IRBESARTAN
     Dosage: 1 DF, 1X/DAY
  9. CELECOXIB. [Suspect]
     Active Substance: CELECOXIB
     Indication: OSTEOPOROTIC FRACTURE
     Dosage: 200 MG, 2X/DAY
     Dates: start: 20140605, end: 20140612
  10. IPRATROPIUM [Concomitant]
     Active Substance: IPRATROPIUM
     Dosage: 1 DF, 3X/DAY

REACTIONS (3)
  - Hypothermia [Unknown]
  - Activities of daily living impaired [Unknown]
  - Delirium [Recovered/Resolved]

NARRATIVE: CASE EVENT DATE: 20140611
